FAERS Safety Report 24361225 (Version 3)
Quarter: 2025Q3

REPORT INFORMATION
  Report Type: Spontaneous
  Country: US (occurrence: US)
  Receive Date: 20240925
  Receipt Date: 20250820
  Transmission Date: 20251021
  Serious: Yes (Hospitalization, Other)
  Sender: ALKEM
  Company Number: None

PATIENT
  Age: 74 Year
  Sex: Male

DRUGS (14)
  1. MYCOPHENOLATE MOFETIL [Suspect]
     Active Substance: MYCOPHENOLATE MOFETIL
     Indication: Immunosuppressant drug therapy
     Dosage: 360 MILLIGRAM, BID
     Route: 065
  2. MYCOPHENOLATE MOFETIL [Suspect]
     Active Substance: MYCOPHENOLATE MOFETIL
     Dosage: 180 MILLIGRAM, BID
     Route: 065
  3. MYCOPHENOLATE MOFETIL [Suspect]
     Active Substance: MYCOPHENOLATE MOFETIL
     Route: 065
  4. TACROLIMUS [Suspect]
     Active Substance: TACROLIMUS
     Indication: Immunosuppressant drug therapy
     Dosage: 0.75 MILLIGRAM, BID
     Route: 065
  5. TACROLIMUS [Suspect]
     Active Substance: TACROLIMUS
     Dosage: 1 MILLIGRAM, BID (DOSE INCREASED)
     Route: 065
  6. POSACONAZOLE [Interacting]
     Active Substance: POSACONAZOLE
     Indication: Infection prophylaxis
     Route: 065
  7. PREDNISONE [Suspect]
     Active Substance: PREDNISONE
     Indication: Immunosuppressant drug therapy
     Dosage: 5 MILLIGRAM, BID
     Route: 065
  8. VALGANCICLOVIR [Interacting]
     Active Substance: VALGANCICLOVIR
     Indication: Infection prophylaxis
     Route: 065
  9. APIXABAN [Concomitant]
     Active Substance: APIXABAN
     Indication: Deep vein thrombosis
     Route: 065
  10. APIXABAN [Concomitant]
     Active Substance: APIXABAN
     Indication: Atrial fibrillation
  11. ASPIRIN [Concomitant]
     Active Substance: ASPIRIN
     Indication: Product used for unknown indication
     Route: 065
  12. ATOVAQUONE [Concomitant]
     Active Substance: ATOVAQUONE
     Indication: Infection prophylaxis
     Route: 065
  13. AZITHROMYCIN [Concomitant]
     Active Substance: AZITHROMYCIN
     Indication: Infection prophylaxis
     Route: 065
  14. LEVOFLOXACIN [Concomitant]
     Active Substance: LEVOFLOXACIN
     Indication: Infection prophylaxis
     Route: 065

REACTIONS (13)
  - Presyncope [Unknown]
  - Dehydration [Unknown]
  - Hypophagia [Unknown]
  - Anaemia megaloblastic [Unknown]
  - Mouth ulceration [Recovered/Resolved]
  - Drug interaction [Unknown]
  - Asthenia [Unknown]
  - Weight decreased [Unknown]
  - Pancytopenia [Recovering/Resolving]
  - Leukocytosis [Recovering/Resolving]
  - Pneumonia bacterial [Unknown]
  - Mycobacterial infection [Unknown]
  - Lung transplant rejection [Unknown]
